FAERS Safety Report 9054653 (Version 2)
Quarter: 2013Q1

REPORT INFORMATION
  Report Type: Spontaneous
  Country: IT (occurrence: IT)
  Receive Date: 20130208
  Receipt Date: 20130227
  Transmission Date: 20140127
  Serious: Yes (Hospitalization)
  Sender: FDA-Public Use
  Company Number: IT-BRISTOL-MYERS SQUIBB COMPANY-17336322

PATIENT
  Age: 70 Year
  Sex: Male

DRUGS (2)
  1. ONGLYZA TABS 5 MG [Suspect]
     Indication: DIABETES MELLITUS
     Route: 048
     Dates: start: 20111003, end: 20130128
  2. METFORMIN HCL TABS [Suspect]
     Indication: DIABETES MELLITUS
     Dosage: LAST DOSE-28JAN13
     Route: 048
     Dates: start: 20000605

REACTIONS (1)
  - Pancreatitis acute [Unknown]
